FAERS Safety Report 13880547 (Version 2)
Quarter: 2017Q4

REPORT INFORMATION
  Report Type: Spontaneous
  Country: US (occurrence: US)
  Receive Date: 20170818
  Receipt Date: 20171222
  Transmission Date: 20180320
  Serious: Yes (Other)
  Sender: FDA-Public Use
  Company Number: US-PFIZER INC-2017356750

PATIENT
  Age: 56 Year
  Sex: Female
  Weight: 113.4 kg

DRUGS (6)
  1. LYRICA [Suspect]
     Active Substance: PREGABALIN
     Indication: NEUROPATHY PERIPHERAL
     Dosage: 150 MG, 2X/DAY
     Dates: start: 200808
  2. LYRICA [Suspect]
     Active Substance: PREGABALIN
     Indication: FIBROMYALGIA
     Dosage: 150 MG, 2X/DAY
  3. CYCLOBENZAPRINE. [Concomitant]
     Active Substance: CYCLOBENZAPRINE
     Dosage: UNK
     Dates: start: 2001
  4. CORTISONE [Concomitant]
     Active Substance: CORTISONE\HYDROCORTISONE
     Dosage: UNK
     Dates: start: 2005
  5. ENDOCET [Concomitant]
     Active Substance: ACETAMINOPHEN\OXYCODONE HYDROCHLORIDE
     Dosage: UNK
     Dates: start: 1999
  6. SYNVISC-ONE [Concomitant]
     Active Substance: HYALURONATE SODIUM
     Dosage: UNK
     Dates: start: 20150407, end: 201505

REACTIONS (2)
  - Neuropathy peripheral [Unknown]
  - Chondropathy [Not Recovered/Not Resolved]

NARRATIVE: CASE EVENT DATE: 20170719
